FAERS Safety Report 24127480 (Version 5)
Quarter: 2025Q2

REPORT INFORMATION
  Report Type: Spontaneous
  Country: US (occurrence: US)
  Receive Date: 20240723
  Receipt Date: 20250611
  Transmission Date: 20250717
  Serious: No
  Sender: SANOFI AVENTIS
  Company Number: US-SA-SAC20240716000317

PATIENT
  Age: 52 Year
  Sex: Female
  Weight: 81.633 kg

DRUGS (2)
  1. DUPIXENT [Suspect]
     Active Substance: DUPILUMAB
     Indication: Dermatitis atopic
     Dosage: 300 MG, QOW
     Route: 058
     Dates: start: 2024
  2. DUPIXENT [Suspect]
     Active Substance: DUPILUMAB
     Indication: Eczema

REACTIONS (14)
  - Skin haemorrhage [Unknown]
  - Infection [Unknown]
  - Injection site urticaria [Unknown]
  - Dry skin [Unknown]
  - Skin fissures [Unknown]
  - Blister [Unknown]
  - Eye swelling [Unknown]
  - Dry eye [Unknown]
  - Injection site pain [Unknown]
  - Injection site swelling [Recovered/Resolved]
  - Eye pruritus [Unknown]
  - Oral herpes [Unknown]
  - Pruritus [Unknown]
  - Therapeutic response decreased [Unknown]
